FAERS Safety Report 8180943-6 (Version None)
Quarter: 2012Q1

REPORT INFORMATION
  Report Type: 
  Country: None (occurrence: None)
  Receive Date: 20120302
  Receipt Date: 20120228
  Transmission Date: 20120608
  Serious: Yes (Death)
  Sender: FDA-Public Use
  Company Number: US-BRISTOL-MYERS SQUIBB COMPANY-16365520

PATIENT
  Age: 28 Year
  Sex: Male
  Weight: 44 kg

DRUGS (21)
  1. CISPLATIN [Suspect]
     Indication: HEAD AND NECK CANCER
     Dosage: TAKEN ON D1
     Route: 042
     Dates: start: 20120116, end: 20120116
  2. FLUOROURACIL [Suspect]
     Indication: HEAD AND NECK CANCER
     Dosage: TAKEN ON D1-4
     Route: 042
     Dates: start: 20120116, end: 20120116
  3. AMITRIPTYLINE HCL [Concomitant]
     Indication: DEPRESSION
     Dates: start: 20120109
  4. CLONAZEPAM [Concomitant]
     Indication: ANXIETY
     Dates: start: 20110127
  5. SENNOSIDE [Concomitant]
     Dates: start: 20120116
  6. FOSAPREPITANT DIMEGLUMINE [Concomitant]
     Dates: start: 20120116
  7. CIPROFLOXACIN [Concomitant]
     Indication: ORAL CANDIDIASIS
     Dates: start: 20120120
  8. PROCHLORPERAZINE [Concomitant]
     Dates: start: 20120116
  9. DEXAMETHASONE [Concomitant]
     Dates: start: 20120117
  10. OXYCODONE HCL [Concomitant]
     Dates: start: 20120116
  11. CHLORHEXIDINE GLUCONATE [Concomitant]
     Indication: ORAL CANDIDIASIS
     Dates: start: 20111025
  12. FENTANYL [Concomitant]
     Dates: start: 20111229
  13. FERROUS FUMARATE [Concomitant]
     Dates: start: 20111201
  14. NICODERM CQ [Concomitant]
     Dates: start: 20111015
  15. PALONOSETRON [Concomitant]
     Dates: start: 20120116
  16. SODIUM CHLORIDE [Concomitant]
     Dates: start: 20120116
  17. CETUXIMAB [Suspect]
     Indication: HEAD AND NECK CANCER
     Route: 042
     Dates: start: 20120116, end: 20120116
  18. APREPITANT [Concomitant]
     Indication: ANTIEMETIC SUPPORTIVE CARE
     Dates: start: 20120117
  19. FLUCONAZOLE [Concomitant]
     Indication: ORAL CANDIDIASIS
     Dates: start: 20120120
  20. ONDANSETRON [Concomitant]
     Dates: start: 20120118
  21. BENADRYL [Concomitant]
     Dates: start: 20120116

REACTIONS (2)
  - CARDIAC ARREST [None]
  - SUDDEN DEATH [None]
